FAERS Safety Report 8215407-4 (Version None)
Quarter: 2012Q1

REPORT INFORMATION
  Report Type: 
  Country: None (occurrence: None)
  Receive Date: 20120316
  Receipt Date: 20120305
  Transmission Date: 20120608
  Serious: No
  Sender: FDA-Public Use
  Company Number: US-B.I. PHARMACEUTICALS,INC./RIDGEFIELD-2012-BP-04173BP

PATIENT
  Sex: Female

DRUGS (7)
  1. KEPPRA [Concomitant]
     Indication: EPILEPSY
     Dosage: 750 MG
     Route: 048
  2. DETROL LA [Concomitant]
     Indication: INCONTINENCE
     Dosage: 4 MG
     Route: 048
  3. CARDIZEM [Concomitant]
     Indication: ATRIAL FIBRILLATION
     Dosage: 360 MG
     Route: 048
  4. PRADAXA [Suspect]
     Indication: ATRIAL FIBRILLATION
     Dosage: 300 MG
     Route: 048
     Dates: start: 20110501
  5. NEXIUM [Concomitant]
     Indication: GASTROOESOPHAGEAL REFLUX DISEASE
     Dosage: 40 MG
     Route: 048
  6. TAMOXIFEN CITRATE [Concomitant]
     Indication: BREAST CANCER
     Dosage: 20 MG
     Route: 048
  7. LASIX [Concomitant]
     Indication: FLUID OVERLOAD
     Dosage: 20 MG
     Route: 048

REACTIONS (1)
  - DIZZINESS [None]
